FAERS Safety Report 18735250 (Version 1)
Quarter: 2021Q1

REPORT INFORMATION
  Report Type: Spontaneous
  Country: US (occurrence: US)
  Receive Date: 20210112
  Receipt Date: 20210112
  Transmission Date: 20210419
  Serious: Yes (Death)
  Sender: FDA-Public Use
  Company Number: None

PATIENT
  Age: 22 Year
  Sex: Male

DRUGS (17)
  1. TOBRAMYCIN 300MG/5ML TOBI GEQ [Suspect]
     Active Substance: TOBRAMYCIN
     Indication: PRODUCT USED FOR UNKNOWN INDICATION
     Dosage: 1 VIAL BID ? QOM INH
     Route: 055
     Dates: start: 20180220
  2. CLONAZEPAM. [Concomitant]
     Active Substance: CLONAZEPAM
  3. PEPCID [Concomitant]
     Active Substance: FAMOTIDINE
  4. PULMICORT TURBUHALER [Concomitant]
     Active Substance: BUDESONIDE
  5. ALBUTEROL NEB [Concomitant]
     Active Substance: ALBUTEROL
  6. OMEPRAZOLE. [Concomitant]
     Active Substance: OMEPRAZOLE
  7. ROBINUL [Concomitant]
     Active Substance: GLYCOPYRROLATE
  8. TAMIFLU [Concomitant]
     Active Substance: OSELTAMIVIR PHOSPHATE
  9. VALPORIC ACID [Concomitant]
     Active Substance: VALPROIC ACID
  10. BACLOFEN. [Concomitant]
     Active Substance: BACLOFEN
  11. CIPROFLOXACIN. [Concomitant]
     Active Substance: CIPROFLOXACIN
  12. MULTIVITAL [Concomitant]
  13. CALCIUM CARB [Concomitant]
     Active Substance: CALCIUM CARBONATE
  14. COLISTIMETH [Concomitant]
  15. DIASTAT PED GEL [Concomitant]
  16. SINGULAIR [Concomitant]
     Active Substance: MONTELUKAST SODIUM
  17. MIRALAX [Concomitant]
     Active Substance: POLYETHYLENE GLYCOL 3350

REACTIONS (1)
  - Death [None]

NARRATIVE: CASE EVENT DATE: 20210112
